FAERS Safety Report 8924908 (Version 3)
Quarter: 2012Q4

REPORT INFORMATION
  Report Type: 
  Country: JP (occurrence: JP)
  Receive Date: 20121126
  Receipt Date: 20121219
  Transmission Date: 20130627
  Serious: Yes (Hospitalization)
  Sender: FDA-Public Use
  Company Number: JP-B.I. PHARMACEUTICALS,INC./RIDGEFIELD-2012-BI-00592NB

PATIENT
  Age: 76 Year
  Sex: Female
  Weight: 62 kg

DRUGS (9)
  1. PRADAXA [Suspect]
     Indication: THROMBOSIS PROPHYLAXIS
     Dosage: 220 mg
     Route: 048
     Dates: start: 20121106, end: 20121110
  2. TAKEPRON [Concomitant]
     Route: 048
  3. NORVASC [Concomitant]
     Route: 048
  4. FERROMIA [Concomitant]
     Route: 048
  5. MAGMITT [Concomitant]
     Route: 048
  6. MUCODYNE [Concomitant]
     Route: 048
  7. MEVALOTIN [Concomitant]
     Route: 048
  8. CEFTRIAXONE SODIUM HYDRATE [Concomitant]
     Route: 042
     Dates: start: 20121109
  9. OMEPRAL [Concomitant]
     Route: 042
     Dates: start: 20121109

REACTIONS (1)
  - Renal failure acute [Not Recovered/Not Resolved]
